FAERS Safety Report 4911522-9 (Version None)
Quarter: 2006Q1

REPORT INFORMATION
  Report Type: 
  Country: None (occurrence: None)
  Receive Date: 20060214
  Receipt Date: 20051024
  Transmission Date: 20060701
  Serious: Yes (Hospitalization, Disabling)
  Sender: FDA-Public Use
  Company Number: US-MERCK-0510USA09054

PATIENT
  Age: 84 Year
  Sex: Male
  Weight: 93 kg

DRUGS (2)
  1. VIOXX [Suspect]
     Indication: PAIN
     Route: 048
     Dates: start: 20020101, end: 20040301
  2. VIOXX [Suspect]
     Route: 048
     Dates: start: 20020101, end: 20040301

REACTIONS (16)
  - ANXIETY [None]
  - CARDIOVASCULAR DISORDER [None]
  - CAROTID ARTERY STENOSIS [None]
  - CEREBROVASCULAR ACCIDENT [None]
  - HEAD INJURY [None]
  - INJURY [None]
  - INTERNAL INJURY [None]
  - MUSCLE INJURY [None]
  - NERVOUS SYSTEM DISORDER [None]
  - PROCEDURAL COMPLICATION [None]
  - PROCEDURAL PAIN [None]
  - SCAR [None]
  - SENSORY DISTURBANCE [None]
  - SWELLING [None]
  - VASCULAR INJURY [None]
  - WRONG TECHNIQUE IN DRUG USAGE PROCESS [None]
